FAERS Safety Report 7012270-4 (Version None)
Quarter: 2010Q3

REPORT INFORMATION
  Report Type: 
  Country: None (occurrence: None)
  Receive Date: 20100924
  Receipt Date: 20100914
  Transmission Date: 20110219
  Serious: Yes (Other)
  Sender: FDA-Public Use
  Company Number: US-JNJFOC-20100905293

PATIENT
  Sex: Female
  Weight: 53.52 kg

DRUGS (4)
  1. REMICADE [Suspect]
     Indication: PSORIATIC ARTHROPATHY
     Dosage: 5 YEARS
     Route: 042
  2. PROBIOTICS [Concomitant]
  3. AMBIEN [Concomitant]
     Indication: SLEEP DISORDER
  4. ATIVAN [Concomitant]
     Indication: ANXIETY
     Dosage: DECREASING

REACTIONS (3)
  - BREAST CANCER STAGE I [None]
  - FATIGUE [None]
  - URINARY TRACT INFECTION [None]
